FAERS Safety Report 23687585 (Version 3)
Quarter: 2024Q3

REPORT INFORMATION
  Report Type: Other
  Country: CA (occurrence: CA)
  Receive Date: 20240329
  Receipt Date: 20240718
  Transmission Date: 20241017
  Serious: Yes (Hospitalization, Other)
  Sender: ASTELLAS
  Company Number: CA-ASTELLAS-2024US009412

PATIENT
  Age: 8 Year
  Sex: Male

DRUGS (11)
  1. AMBISOME [Suspect]
     Active Substance: AMPHOTERICIN B
     Indication: Product used for unknown indication
     Dosage: UNK UNK, UNKNOWN FREQ.
     Route: 042
     Dates: start: 20240321
  2. BECLOMETHASONE DIPROPIONATE [Concomitant]
     Active Substance: BECLOMETHASONE DIPROPIONATE
     Indication: Product used for unknown indication
     Dosage: 50 ?G, ONCE DAILY (ADMINISTER 1 SPRAY INTO  AFFECTED NOSTRIL(S)
     Route: 045
  3. CICLESONIDE [Concomitant]
     Active Substance: CICLESONIDE
     Indication: Product used for unknown indication
     Dosage: 200 ?G, ONCE DAILY (MDI) (100 MCG/PUFF METERED DOSE INHALER) (1 EVERY 1 DAYS)
     Route: 050
  4. DESONIDE [Concomitant]
     Active Substance: DESONIDE
     Indication: Product used for unknown indication
     Dosage: 0.05 %, TWICE DAILY TO FACE (1 EVERY .5 DAYS)
     Route: 061
  5. POLYETHYLENE GLYCOL 3350 [Concomitant]
     Active Substance: POLYETHYLENE GLYCOL 3350
     Indication: Product used for unknown indication
     Dosage: 17 G, ONCE DAILY (AS NEEDED)
     Route: 048
  6. SEPTRA [Concomitant]
     Active Substance: SULFAMETHOXAZOLE\TRIMETHOPRIM
     Indication: Product used for unknown indication
     Dosage: UNK UNK, OTHER (BID ON SATURDAY/SUNDAY ONLY)
     Route: 065
  7. VITAMIN D3 [Concomitant]
     Active Substance: CHOLECALCIFEROL
     Indication: Product used for unknown indication
     Dosage: 1000 UNITS, ONCE DAILY (400 UNITS/ML SOLUTION)
     Route: 048
  8. Piptazo [Concomitant]
     Indication: Product used for unknown indication
     Dosage: UNK UNK, EVERY 6 HOURS (LAST DOSE IN AFTERNOON)
     Route: 042
     Dates: start: 20240314, end: 20240321
  9. MERCAPTOPURINE [Concomitant]
     Active Substance: MERCAPTOPURINE
     Indication: Product used for unknown indication
     Dosage: TAKE 25 MG FIVE TIMES A WEEK AND 50 MG TWICE A WEEK (DO ALL THIS FOR 84 DAYS), OTHER
     Route: 048
  10. METHOTREXATE [Concomitant]
     Active Substance: METHOTREXATE
     Indication: Product used for unknown indication
     Dosage: TAKE 10 MG EVERY 7 (SEVEN) DAYS FOR 11 DOSES AND DO NOT GIVE SAME WEEK AS INTRATHECAL, OTHER
     Route: 048
  11. ONDANSETRON [Concomitant]
     Active Substance: ONDANSETRON
     Indication: Product used for unknown indication
     Dosage: TAKE 6.5 ML (5.2 MG) EVERY 8 (EIGHT) HOURS, AS NEEDED
     Route: 048

REACTIONS (6)
  - Eye pruritus [Recovering/Resolving]
  - Ocular hyperaemia [Recovering/Resolving]
  - Stridor [Recovering/Resolving]
  - Wheezing [Recovering/Resolving]
  - Infusion related reaction [Recovering/Resolving]
  - Anaphylactic reaction [Unknown]

NARRATIVE: CASE EVENT DATE: 20240321
